FAERS Safety Report 7499511-4 (Version None)
Quarter: 2011Q2

REPORT INFORMATION
  Report Type: 
  Country: None (occurrence: None)
  Receive Date: 20110524
  Receipt Date: 20110517
  Transmission Date: 20111010
  Serious: Yes (Hospitalization)
  Sender: FDA-Public Use
  Company Number: RU-B.I. PHARMACEUTICALS,INC./RIDGEFIELD-2011-AP-00250AP

PATIENT
  Age: 73 Year
  Sex: Male

DRUGS (5)
  1. SIMBICORT [Concomitant]
     Indication: CHRONIC OBSTRUCTIVE PULMONARY DISEASE
  2. BERODUAL [Concomitant]
     Indication: CHRONIC OBSTRUCTIVE PULMONARY DISEASE
  3. CALCIUM CHANNEL BLOCKER (NOS) [Concomitant]
  4. SPIRIVA [Suspect]
     Indication: CHRONIC OBSTRUCTIVE PULMONARY DISEASE
     Dosage: 18 MCG
     Route: 055
     Dates: start: 20070101
  5. SPIRIVA [Suspect]

REACTIONS (4)
  - CHRONIC OBSTRUCTIVE PULMONARY DISEASE [None]
  - DRUG EFFECT DECREASED [None]
  - PRODUCT PACKAGING QUANTITY ISSUE [None]
  - CONDITION AGGRAVATED [None]
